FAERS Safety Report 5879943-8 (Version None)
Quarter: 2008Q3

REPORT INFORMATION
  Report Type: 
  Country: None (occurrence: None)
  Receive Date: 20080912
  Receipt Date: 20080713
  Transmission Date: 20090109
  Serious: Yes (Other)
  Sender: FDA-Public Use
  Company Number: BR-WYE-H05867708

PATIENT
  Age: 54 Year
  Sex: Male
  Weight: 67 kg

DRUGS (7)
  1. PANTOZOL [Suspect]
     Indication: GASTRITIS
     Route: 048
     Dates: start: 20071201, end: 20080712
  2. PANTOZOL [Suspect]
     Indication: GASTROOESOPHAGEAL REFLUX DISEASE
  3. HYDROCHLOROTHIAZIDE [Concomitant]
     Indication: HYPERTENSION
     Dosage: UNKNOWN
     Dates: start: 20080601, end: 20080712
  4. AMLODIPINE [Concomitant]
     Indication: HYPERTENSION
     Dosage: UNKNOWN
     Dates: start: 20050101
  5. LOSARTAN POTASSIUM [Concomitant]
     Indication: HYPERTENSION
     Dosage: UNKNOWN
     Route: 048
     Dates: start: 20050101, end: 20080601
  6. LOSARTAN POTASSIUM [Concomitant]
     Dosage: UNKNOWN
     Dates: start: 20080701
  7. IRBESARTAN [Concomitant]
     Indication: HYPERTENSION
     Dosage: UNKNOWN
     Dates: start: 20080601, end: 20080712

REACTIONS (2)
  - HYPERTENSIVE CRISIS [None]
  - HYPOAESTHESIA [None]
